FAERS Safety Report 20427833 (Version 1)
Quarter: 2022Q1

REPORT INFORMATION
  Report Type: Spontaneous
  Country: CN (occurrence: CN)
  Receive Date: 20220204
  Receipt Date: 20220204
  Transmission Date: 20220423
  Serious: Yes (Hospitalization, Other)
  Sender: FDA-Public Use
  Company Number: CN-BAYER-2022A015637

PATIENT
  Age: 85 Year
  Sex: Male
  Weight: 50 kg

DRUGS (2)
  1. XARELTO [Suspect]
     Active Substance: RIVAROXABAN
     Indication: Atrial fibrillation
     Dosage: 10 MG, QD
     Route: 048
     Dates: start: 20190328, end: 20220118
  2. METOPROLOL TARTRATE [Concomitant]
     Active Substance: METOPROLOL TARTRATE
     Indication: Heart rate increased
     Dosage: 12.5 MG, BID
     Route: 048
     Dates: start: 20190328, end: 20220127

REACTIONS (16)
  - Gastrointestinal haemorrhage [Recovered/Resolved]
  - Melaena [Recovered/Resolved]
  - Respiratory failure [Recovering/Resolving]
  - Chronic obstructive pulmonary disease [Recovering/Resolving]
  - Lower respiratory tract infection [Recovering/Resolving]
  - Pulmonary embolism [Recovering/Resolving]
  - Blood loss anaemia [Recovering/Resolving]
  - Cardiac failure acute [Recovering/Resolving]
  - Parkinson^s disease [Recovering/Resolving]
  - Hypoproteinaemia [Recovering/Resolving]
  - Venous thrombosis limb [Recovering/Resolving]
  - Renal failure [Recovering/Resolving]
  - Hepatic function abnormal [Recovering/Resolving]
  - Pulmonary hypertension [Recovering/Resolving]
  - Underdose [Unknown]
  - Prescribed underdose [Unknown]

NARRATIVE: CASE EVENT DATE: 20190328
